FAERS Safety Report 18822423 (Version 1)
Quarter: 2021Q1

REPORT INFORMATION
  Report Type: Spontaneous
  Country: CN (occurrence: CN)
  Receive Date: 20210202
  Receipt Date: 20210202
  Transmission Date: 20210419
  Serious: Yes (Other)
  Sender: FDA-Public Use
  Company Number: CN-PFIZER INC-2021077350

PATIENT
  Age: 73 Year
  Sex: Female
  Weight: 61 kg

DRUGS (6)
  1. CELEBREX [Suspect]
     Active Substance: CELECOXIB
     Indication: EPICONDYLITIS
     Dosage: 200 MG, 2X/DAY
     Route: 048
     Dates: start: 20210120, end: 20210122
  2. CELEBREX [Suspect]
     Active Substance: CELECOXIB
     Indication: ANTIINFLAMMATORY THERAPY
  3. A LE XIN [Concomitant]
     Active Substance: AZLOCILLIN SODIUM
     Indication: ANTI-INFECTIVE THERAPY
     Dosage: 4.0 (AS REPORTED), 2X/DAY
     Route: 041
     Dates: start: 20210116, end: 20210121
  4. CELEBREX [Suspect]
     Active Substance: CELECOXIB
     Indication: PAIN
     Dosage: 200 MG, 2X/DAY
     Route: 048
     Dates: start: 20210120, end: 20210122
  5. A LE XIN [Concomitant]
     Active Substance: AZLOCILLIN SODIUM
     Indication: BRONCHITIS
     Dosage: 4 G, 2X/DAY
     Route: 041
     Dates: start: 20210116, end: 20210124
  6. SODIUM CHLORIDE. [Concomitant]
     Active Substance: SODIUM CHLORIDE
     Indication: VEHICLE SOLUTION USE
     Dosage: 100 ML, 2X/DAY
     Route: 041
     Dates: start: 20210116, end: 20210124

REACTIONS (4)
  - Chest discomfort [Recovering/Resolving]
  - Bronchitis [Recovering/Resolving]
  - Condition aggravated [Recovering/Resolving]
  - Tachypnoea [Recovering/Resolving]

NARRATIVE: CASE EVENT DATE: 20210122
